FAERS Safety Report 24411878 (Version 1)
Quarter: 2024Q4

REPORT INFORMATION
  Report Type: Spontaneous
  Country: FR (occurrence: FR)
  Receive Date: 20241008
  Receipt Date: 20241008
  Transmission Date: 20250115
  Serious: Yes (Life-Threatening)
  Sender: WAYLIS
  Company Number: None

PATIENT
  Age: 27 Year
  Sex: Male

DRUGS (10)
  1. VALIUM [Suspect]
     Active Substance: DIAZEPAM
     Indication: Schizophrenia
     Dosage: 30 DROPS 4/D VALIUM 1 PER CENT, ORAL SOLUTION IN DROPS
     Route: 050
     Dates: end: 20240825
  2. TRIMEPRAZINE [Suspect]
     Active Substance: TRIMEPRAZINE
     Indication: Insomnia
     Route: 050
     Dates: end: 20240825
  3. LOXAPINE [Suspect]
     Active Substance: LOXAPINE
     Indication: Schizophrenia
     Dosage: 1DF 4/DAY
     Route: 050
     Dates: end: 20240825
  4. PANTOPRAZOLE [Suspect]
     Active Substance: PANTOPRAZOLE
     Indication: Product used for unknown indication
     Route: 050
     Dates: end: 20240825
  5. ATROPINE [Suspect]
     Active Substance: ATROPINE
     Indication: Product used for unknown indication
     Dosage: 2 DROPS 2/D
     Route: 050
     Dates: end: 20240825
  6. CLOZAPINE [Suspect]
     Active Substance: CLOZAPINE
     Indication: Schizophrenia
     Route: 050
     Dates: start: 20240803, end: 20240825
  7. ZOPICLONE [Suspect]
     Active Substance: ZOPICLONE
     Indication: Insomnia
     Route: 050
     Dates: end: 20240825
  8. TROPATEPINE HYDROCHLORIDE [Suspect]
     Active Substance: TROPATEPINE HYDROCHLORIDE
     Indication: Drug toxicity prophylaxis
     Route: 050
     Dates: end: 20240825
  9. VALPROATE SODIUM [Suspect]
     Active Substance: VALPROATE SODIUM
     Indication: Schizophrenia
     Route: 050
     Dates: end: 20240825
  10. HALDOL [Suspect]
     Active Substance: HALOPERIDOL
     Indication: Schizophrenia
     Dosage: 250 DROPS /D
     Route: 050
     Dates: end: 20240825

REACTIONS (3)
  - Intestinal obstruction [Not Recovered/Not Resolved]
  - Septic shock [Not Recovered/Not Resolved]
  - Large intestine perforation [Not Recovered/Not Resolved]

NARRATIVE: CASE EVENT DATE: 20240824
